FAERS Safety Report 13754008 (Version 1)
Quarter: 2017Q3

REPORT INFORMATION
  Report Type: Spontaneous
  Country: US (occurrence: US)
  Receive Date: 20170714
  Receipt Date: 20170714
  Transmission Date: 20171127
  Serious: No
  Sender: FDA-Public Use
  Company Number: None

PATIENT
  Age: 64 Year
  Sex: Female
  Weight: 51.71 kg

DRUGS (11)
  1. AMITRIPTYLINE [Concomitant]
     Active Substance: AMITRIPTYLINE
  2. VAGIFEM [Concomitant]
     Active Substance: ESTRADIOL
  3. XIIDRA [Suspect]
     Active Substance: LIFITEGRAST
     Indication: DRY EYE
     Dates: start: 20170530, end: 20170531
  4. MULTIVITAMINS [Concomitant]
     Active Substance: VITAMINS
  5. REGENAMAX [Concomitant]
  6. VITAMIN D [Concomitant]
     Active Substance: CHOLECALCIFEROL
  7. STRONTIUM [Concomitant]
     Active Substance: STRONTIUM
  8. CLOBETASOL [Concomitant]
     Active Substance: CLOBETASOL
  9. VITAMIN E [Concomitant]
     Active Substance: .ALPHA.-TOCOPHEROL
  10. CALCIUM [Concomitant]
     Active Substance: CALCIUM
  11. VITAMIN B COMPLEX [Concomitant]
     Active Substance: CYANOCOBALAMIN\DEXPANTHENOL\NIACINAMIDE\PYRIDOXINE HYDROCHLORIDE\RIBOFLAVIN 5^-PHOSPHATE SODIUM\THIAMINE HYDROCHLORIDE\VITAMIN B COMPLEX

REACTIONS (4)
  - Dysgeusia [None]
  - Instillation site pain [None]
  - Chemical eye injury [None]
  - Sinusitis [None]

NARRATIVE: CASE EVENT DATE: 20170530
